FAERS Safety Report 19876753 (Version 2)
Quarter: 2021Q4

REPORT INFORMATION
  Report Type: Other
  Country: AR (occurrence: AR)
  Receive Date: 20210924
  Receipt Date: 20211101
  Transmission Date: 20220303
  Serious: Yes (Hospitalization, Other)
  Sender: FDA-Public Use
  Company Number: AR-002147023-NVSC2021AR211030

PATIENT
  Age: 75 Year
  Sex: Male

DRUGS (7)
  1. XOLAIR [Suspect]
     Active Substance: OMALIZUMAB
     Indication: Asthma
     Route: 058
     Dates: start: 20140305, end: 202107
  2. LOSARTAN [Concomitant]
     Active Substance: LOSARTAN
     Indication: Hypertension
     Dosage: 50 MG, QD (1 OF 50 MG)
     Route: 065
  3. VALSARTAN [Concomitant]
     Active Substance: VALSARTAN
     Indication: Hypertension
     Dosage: 1 DF, QD (160/ 12.5, 1 MONTH AGO)
     Route: 065
  4. PROAIR BRONQUIAL [Concomitant]
     Indication: Asthma
     Dosage: UNK, QD (500/50)
     Route: 065
  5. SPIRIVA [Concomitant]
     Active Substance: TIOTROPIUM BROMIDE MONOHYDRATE
     Indication: Asthma
     Dosage: 500 MG, QD
     Route: 065
  6. SINGULAIR [Concomitant]
     Active Substance: MONTELUKAST SODIUM
     Indication: Asthma
     Dosage: 10 MG, QD (1 OF 10MG)
     Route: 065
  7. SALBUTRAL AC [Concomitant]
     Indication: Asthma
     Dosage: PUFF
     Route: 065

REACTIONS (6)
  - Bronchospasm [Unknown]
  - Cardiac arrest [Unknown]
  - Diabetes mellitus [Unknown]
  - Feeling abnormal [Unknown]
  - Urinary tract disorder [Unknown]
  - Infarction [Unknown]

NARRATIVE: CASE EVENT DATE: 20210908
